FAERS Safety Report 21707317 (Version 4)
Quarter: 2023Q1

REPORT INFORMATION
  Report Type: Spontaneous
  Country: US (occurrence: US)
  Receive Date: 20221209
  Receipt Date: 20230317
  Transmission Date: 20230418
  Serious: Yes (Death)
  Sender: FDA-Public Use
  Company Number: US-PFIZER INC-202201356893

PATIENT
  Age: 64 Year
  Sex: Male
  Weight: 54.422 kg

DRUGS (1)
  1. TRAZIMERA [Suspect]
     Active Substance: TRASTUZUMAB-QYYP
     Indication: Oesophageal carcinoma
     Dosage: UNK, WEEKLY (DOSE UNKNOWN, IV INFUSION EVERY TUESDAY)
     Route: 042
     Dates: end: 20221014

REACTIONS (2)
  - Neoplasm progression [Fatal]
  - Weight decreased [Unknown]
